FAERS Safety Report 21822465 (Version 3)
Quarter: 2023Q2

REPORT INFORMATION
  Report Type: Spontaneous
  Country: US (occurrence: US)
  Receive Date: 20230105
  Receipt Date: 20230405
  Transmission Date: 20230721
  Serious: No
  Sender: FDA-Public Use
  Company Number: US-LUPIN PHARMACEUTICALS INC.-2022-14774

PATIENT

DRUGS (2)
  1. ALBUTEROL SULFATE [Suspect]
     Active Substance: ALBUTEROL SULFATE
     Indication: Asthma
     Dosage: UNK, 3-4 PUFFS IN A DAY
  2. ALBUTEROL SULFATE [Suspect]
     Active Substance: ALBUTEROL SULFATE
     Dosage: UNK, 2 PUFFS EVERY 4-6 HOURS AS NEEDED

REACTIONS (6)
  - Wrong technique in product usage process [Unknown]
  - Device information output issue [Unknown]
  - Drug dose omission by device [Unknown]
  - Product preparation error [Unknown]
  - Device delivery system issue [Unknown]
  - No adverse event [Unknown]
